FAERS Safety Report 7736676-0 (Version None)
Quarter: 2011Q3

REPORT INFORMATION
  Report Type: 
  Country: None (occurrence: None)
  Receive Date: 20110908
  Receipt Date: 20110829
  Transmission Date: 20111222
  Serious: Yes (Hospitalization)
  Sender: FDA-Public Use
  Company Number: US-PFIZER INC-2011208497

PATIENT
  Age: 65 Year
  Sex: Female

DRUGS (6)
  1. AMLODIPINE BESYLATE [Suspect]
     Indication: HYPERTENSION
     Dosage: 10 MG, 1X/DAY
     Route: 065
  2. METOPROLOL TARTRATE [Suspect]
     Dosage: 50 MG, 2X/DAY
     Route: 065
  3. LISINOPRIL [Concomitant]
     Dosage: 40 MG,DAILY
     Route: 065
  4. CLONIDINE [Suspect]
     Indication: HYPERTENSION
     Dosage: 0.1 MG, 2X/DAY
     Route: 065
  5. FUROSEMIDE [Concomitant]
     Indication: HYPERTENSION
     Dosage: 80 MG, 2X/DAY
  6. HYDRALAZINE [Concomitant]
     Indication: HYPERTENSION
     Dosage: 100 MG, 2X/DAY
     Route: 065

REACTIONS (4)
  - VISION BLURRED [None]
  - SINUS ARRHYTHMIA [None]
  - SINUS BRADYCARDIA [None]
  - DYSARTHRIA [None]
